FAERS Safety Report 11113089 (Version 1)
Quarter: 2015Q2

REPORT INFORMATION
  Report Type: Spontaneous
  Country: US (occurrence: None)
  Receive Date: 20150504
  Receipt Date: 20150504
  Transmission Date: 20150821
  Serious: Yes (Hospitalization)
  Sender: FDA-Public Use
  Company Number: 1520274

PATIENT
  Age: 36 Year
  Sex: Female
  Weight: 56 kg

DRUGS (10)
  1. OXALIPLATIN. [Concomitant]
     Active Substance: OXALIPLATIN
  2. FOLINIC ACID [Concomitant]
     Active Substance: LEUCOVORIN
  3. BEVACIZUMAB (BEVACIZUMAB) [Suspect]
     Active Substance: BEVACIZUMAB
     Indication: PRODUCT USED FOR UNKNOWN INDICATION
     Dosage: 1 IN 2 WK, UNKNOWN
  4. LORAZEPAM. [Concomitant]
     Active Substance: LORAZEPAM
  5. ZOFRAN [Concomitant]
     Active Substance: ONDANSETRON HYDROCHLORIDE
  6. PEPCID [Concomitant]
     Active Substance: FAMOTIDINE
  7. DEXAMETHASONE. [Concomitant]
     Active Substance: DEXAMETHASONE
  8. COMPAZINE [Concomitant]
     Active Substance: PROCHLORPERAZINE MALEATE
  9. FLUOROURACIL. [Concomitant]
     Active Substance: FLUOROURACIL
  10. FOSAPREPITANT [Concomitant]
     Active Substance: FOSAPREPITANT

REACTIONS (2)
  - Abdominal pain [None]
  - Haematemesis [None]

NARRATIVE: CASE EVENT DATE: 20150108
